FAERS Safety Report 5736779-6 (Version None)
Quarter: 2008Q2

REPORT INFORMATION
  Report Type: 
  Country: None (occurrence: None)
  Receive Date: 20080508
  Receipt Date: 20080424
  Transmission Date: 20081010
  Serious: Yes (Death)
  Sender: FDA-Public Use
  Company Number: 220002L08GBR

PATIENT
  Sex: Male

DRUGS (1)
  1. SOMATROPIN (SOMATROPIN) [Suspect]

REACTIONS (3)
  - RECURRENT CANCER [None]
  - TESTICULAR GERM CELL CANCER [None]
  - THERAPEUTIC RESPONSE DECREASED [None]
